FAERS Safety Report 7789588-0 (Version None)
Quarter: 2011Q3

REPORT INFORMATION
  Report Type: 
  Country: None (occurrence: None)
  Receive Date: 20110930
  Receipt Date: 20110926
  Transmission Date: 20111222
  Serious: Yes (Other)
  Sender: FDA-Public Use
  Company Number: JP-PFIZER INC-2011208862

PATIENT
  Age: 79 Year
  Sex: Male

DRUGS (1)
  1. ZYVOX [Suspect]
     Indication: MENINGITIS
     Dosage: 1200 MG, 1X/DAY
     Route: 041
     Dates: start: 20110823, end: 20110830

REACTIONS (1)
  - HYPONATRAEMIA [None]
